FAERS Safety Report 4913111-9 (Version None)
Quarter: 2006Q1

REPORT INFORMATION
  Report Type: 
  Country: None (occurrence: None)
  Receive Date: 20060210
  Receipt Date: 20060131
  Transmission Date: 20060701
  Serious: Yes (Disabling, Other)
  Sender: FDA-Public Use
  Company Number: 2006016551

PATIENT
  Age: 33 Year
  Sex: Male
  Weight: 65.7716 kg

DRUGS (1)
  1. ZYRTEC [Suspect]
     Indication: RHINITIS SEASONAL
     Dosage: 10 MG (10 MG, 1 IN 1 D), ORAL
     Route: 048

REACTIONS (4)
  - FALL [None]
  - HIP FRACTURE [None]
  - OSTEOPOROSIS [None]
  - PARATHYROID DISORDER [None]
